FAERS Safety Report 8244448 (Version 3)
Quarter: 2012Q4

REPORT INFORMATION
  Report Type: 
  Country: US (occurrence: US)
  Receive Date: 20111115
  Receipt Date: 20120831
  Transmission Date: 20130627
  Serious: Yes (Other)
  Sender: FDA-Public Use
  Company Number: US-BAYER-2011-107542

PATIENT
  Age: 23 Year
  Sex: Female
  Weight: 79.37 kg

DRUGS (15)
  1. YAZ [Suspect]
     Dosage: UNK
     Dates: start: 200706
  2. YAZ [Suspect]
     Dosage: UNK
     Dates: start: 200706, end: 200902
  3. YAZ [Suspect]
     Dosage: UNK
     Dates: start: 200908
  4. YASMIN [Suspect]
     Dosage: UNK
     Dates: start: 200607
  5. YASMIN [Suspect]
     Dosage: UNK
     Dates: start: 200704, end: 200706
  6. LISINOPRIL [Concomitant]
     Dosage: UNK
     Dates: start: 20061108, end: 200804
  7. PROPRANOLOL [Concomitant]
     Dosage: UNK
     Dates: start: 200712, end: 200803
  8. HYDROCHLOROTHIAZIDE [Concomitant]
     Dosage: UNK
     Dates: start: 200610
  9. HYDROCODONE W/ACETAMINOPHEN [Concomitant]
  10. SULFAMETHOXAZOLE [Concomitant]
  11. HYDROCODONE W/APAP [Concomitant]
  12. ERYTHROMYCIN [Concomitant]
  13. CLONIDINE [Concomitant]
  14. ZOFRAN [Concomitant]
  15. TOBRAMYCIN [Concomitant]

REACTIONS (8)
  - Cerebrovascular accident [None]
  - Cerebrovascular accident [None]
  - Venous thrombosis [None]
  - Visual impairment [None]
  - Injury [None]
  - Pain [None]
  - Blindness [None]
  - Emotional distress [None]
